FAERS Safety Report 7325047-7 (Version None)
Quarter: 2011Q1

REPORT INFORMATION
  Report Type: 
  Country: None (occurrence: None)
  Receive Date: 20110302
  Receipt Date: 20110223
  Transmission Date: 20110831
  Serious: Yes (Other)
  Sender: FDA-Public Use
  Company Number: US-ASTRAZENECA-2007UW02019

PATIENT
  Age: 25 Year
  Sex: Male
  Weight: 133.4 kg

DRUGS (16)
  1. NEURONTIN [Concomitant]
     Dates: start: 20020602
  2. SEROQUEL [Suspect]
     Route: 048
     Dates: start: 20040101, end: 20060101
  3. SEROQUEL [Suspect]
     Route: 048
     Dates: start: 20040101, end: 20060101
  4. ASPIRIN [Concomitant]
     Dates: start: 20051216
  5. SEROQUEL [Suspect]
     Indication: AGITATION
     Dosage: 100-150 MG
     Route: 048
     Dates: start: 20020121
  6. SEROQUEL [Suspect]
     Indication: BIPOLAR DISORDER
     Dosage: 100-150 MG
     Route: 048
     Dates: start: 20020121
  7. SEROQUEL [Suspect]
     Route: 048
     Dates: start: 20040101, end: 20060101
  8. RISPERDAL [Concomitant]
     Route: 048
     Dates: start: 19970101, end: 20060101
  9. ZESTRIL [Concomitant]
     Dates: start: 20051216
  10. SEROQUEL [Suspect]
     Indication: INSOMNIA
     Dosage: 100-150 MG
     Route: 048
     Dates: start: 20020121
  11. LITHIUM [Concomitant]
     Route: 048
     Dates: start: 20050101
  12. THORAZINE [Concomitant]
     Dosage: 100 MG PRN
     Dates: start: 20020602
  13. METFORMIN HYDROCHLORIDE [Concomitant]
     Route: 048
     Dates: start: 20060203
  14. ZYPREXA [Concomitant]
     Route: 048
     Dates: start: 20020101
  15. KLONOPIN [Concomitant]
     Route: 048
     Dates: start: 20070501
  16. LAMICTAL [Concomitant]
     Dates: start: 20051216

REACTIONS (6)
  - TYPE 2 DIABETES MELLITUS [None]
  - ERECTILE DYSFUNCTION [None]
  - EAR INFECTION [None]
  - DIABETES MELLITUS INADEQUATE CONTROL [None]
  - HEPATITIS C [None]
  - BLOOD GLUCOSE INCREASED [None]
